FAERS Safety Report 15629105 (Version 1)
Quarter: 2018Q4

REPORT INFORMATION
  Report Type: Not Available
  Country: US (occurrence: US)
  Receive Date: 20181116
  Receipt Date: 20181116
  Transmission Date: 20190205
  Serious: No
  Sender: FDA-Public Use
  Company Number: US-NEUROCRINE BIOSCIENCES INC.-2018NBI03176

PATIENT
  Sex: Female

DRUGS (6)
  1. HALDOL [Concomitant]
     Active Substance: HALOPERIDOL
  2. INGREZZA [Suspect]
     Active Substance: VALBENAZINE
     Indication: TARDIVE DYSKINESIA
     Route: 048
     Dates: start: 201808, end: 20181008
  3. HALDOL [Concomitant]
     Active Substance: HALOPERIDOL
  4. INGREZZA [Suspect]
     Active Substance: VALBENAZINE
     Dates: start: 20181018
  5. CITALOPRAM [Concomitant]
     Active Substance: CITALOPRAM HYDROBROMIDE
  6. LORAZEPAM. [Concomitant]
     Active Substance: LORAZEPAM
     Dosage: AT NIGHT

REACTIONS (6)
  - Discomfort [Unknown]
  - Product use complaint [Unknown]
  - Dyskinesia [Unknown]
  - Tremor [Unknown]
  - Wrong technique in product usage process [Unknown]
  - Restlessness [Unknown]
